FAERS Safety Report 7466887-3 (Version None)
Quarter: 2011Q2

REPORT INFORMATION
  Report Type: 
  Country: None (occurrence: None)
  Receive Date: 20110509
  Receipt Date: 20100921
  Transmission Date: 20111010
  Serious: No
  Sender: FDA-Public Use
  Company Number: US-ALEXION-A201001204

PATIENT
  Sex: Male

DRUGS (6)
  1. ZOLOFT [Concomitant]
     Indication: DEPRESSION
     Dosage: 100 MG, QD
     Route: 048
  2. FOLIC ACID [Concomitant]
     Indication: ANAEMIA
     Dosage: 1 MG, Q2W
     Route: 048
  3. SOLIRIS [Suspect]
     Indication: PAROXYSMAL NOCTURNAL HAEMOGLOBINURIA
     Dosage: 600 MG, QW X 4 WEEKS
     Route: 042
     Dates: start: 20071029, end: 20070101
  4. FEOSOL [Concomitant]
     Indication: ANAEMIA
     Dosage: 325 MG, TID
     Route: 048
  5. SOLIRIS [Suspect]
     Dosage: 900 MG, Q2W
     Route: 042
     Dates: start: 20071205
  6. NORCO [Concomitant]
     Indication: RENAL PAIN
     Dosage: Q4H, PRN
     Route: 048

REACTIONS (2)
  - CHROMATURIA [None]
  - FATIGUE [None]
